FAERS Safety Report 9295427 (Version 1)
Quarter: 2013Q2

REPORT INFORMATION
  Report Type: Spontaneous
  Country: DE (occurrence: DE)
  Receive Date: 20130517
  Receipt Date: 20130517
  Transmission Date: 20140414
  Serious: Yes (Other)
  Sender: FDA-Public Use
  Company Number: DE-JNJFOC-20130504752

PATIENT
  Age: 71 Year
  Sex: Male

DRUGS (10)
  1. DOXORUBICIN [Suspect]
     Indication: MANTLE CELL LYMPHOMA STAGE IV
     Dosage: 3 CYCLES OF R-CHOP
     Route: 042
  2. RITUXIMAB [Suspect]
     Indication: MANTLE CELL LYMPHOMA STAGE IV
     Dosage: 3 CYCLES OF R-DHAP
     Route: 065
  3. RITUXIMAB [Suspect]
     Indication: MANTLE CELL LYMPHOMA STAGE IV
     Dosage: 3 CYCLES OF R-CHOP
     Route: 065
  4. CYCLOPHOSPHAMIDE [Suspect]
     Indication: MANTLE CELL LYMPHOMA STAGE IV
     Dosage: 3 CYCLES OF R-CHOP
     Route: 065
  5. VINCRISTINE [Suspect]
     Indication: MANTLE CELL LYMPHOMA STAGE IV
     Dosage: 3 CYCLES OF R-CHOP
     Route: 065
  6. PREDNISOLONE [Suspect]
     Indication: MANTLE CELL LYMPHOMA STAGE IV
     Dosage: 3 CYCLES OF R-CHOP
     Route: 065
  7. DEXAMETHASONE [Suspect]
     Indication: MANTLE CELL LYMPHOMA STAGE IV
     Dosage: 3 CYCLES OF R-DHAP
     Route: 065
  8. CYTARABINE [Suspect]
     Indication: MANTLE CELL LYMPHOMA STAGE IV
     Dosage: 3 CYCLES OF R-DHAP
     Route: 065
  9. CISPLATIN [Suspect]
     Indication: MANTLE CELL LYMPHOMA STAGE IV
     Dosage: 3 CYCLES OF R-DHAP
     Route: 065
  10. THERAPEUTIC RADIOPHARMACEUTICALS [Suspect]
     Indication: MANTLE CELL LYMPHOMA STAGE IV
     Dosage: CONSOLIDATED WITH RADIOTHERAPY AFTER RECEVING 3 CYCLES OF R-CHOP AND R-DHAP
     Route: 065

REACTIONS (5)
  - Mycosis fungoides recurrent [Recovered/Resolved]
  - Lymphoma [Recovered/Resolved]
  - Splenomegaly [Recovered/Resolved]
  - Ascites [Recovered/Resolved]
  - Mantle cell lymphoma recurrent [Recovered/Resolved]
